FAERS Safety Report 4732026-2 (Version None)
Quarter: 2005Q3

REPORT INFORMATION
  Report Type: 
  Country: None (occurrence: None)
  Receive Date: 20050802
  Receipt Date: 20050725
  Transmission Date: 20060218
  Serious: Yes (Other)
  Sender: FDA-Public Use
  Company Number: GB-ABBOTT-05P-167-0306723-00

PATIENT
  Age: 36 Year
  Sex: Male
  Weight: 95 kg

DRUGS (1)
  1. KLARICID [Suspect]
     Indication: VIRAL INFECTION
     Route: 048
     Dates: start: 20050705, end: 20050707

REACTIONS (3)
  - COUGH [None]
  - RASH GENERALISED [None]
  - RASH MACULAR [None]
